FAERS Safety Report 20772737 (Version 2)
Quarter: 2022Q2

REPORT INFORMATION
  Report Type: Report from Study
  Country: US (occurrence: US)
  Receive Date: 20220502
  Receipt Date: 20220628
  Transmission Date: 20220721
  Serious: Yes (Other)
  Sender: FDA-Public Use
  Company Number: US-TAKEDA-2022TUS009109

PATIENT
  Age: 58 Year
  Sex: Male
  Weight: 97.506 kg

DRUGS (10)
  1. LANADELUMAB [Suspect]
     Active Substance: LANADELUMAB
     Indication: Insomnia
     Dosage: 300 MILLIGRAM, Q4WEEKS
     Route: 058
     Dates: start: 20200605
  2. LANADELUMAB [Suspect]
     Active Substance: LANADELUMAB
     Indication: Immune system disorder
  3. FIRAZYR [Suspect]
     Active Substance: ICATIBANT ACETATE
     Indication: Immune system disorder
     Dosage: 30 MILLIGRAM
     Route: 058
     Dates: start: 20220223
  4. FIRAZYR [Suspect]
     Active Substance: ICATIBANT ACETATE
     Indication: Immune system disorder
     Dosage: 30 MILLIGRAM
     Route: 058
     Dates: start: 20220223
  5. FIRAZYR [Suspect]
     Active Substance: ICATIBANT ACETATE
     Indication: Insomnia
  6. FIRAZYR [Suspect]
     Active Substance: ICATIBANT ACETATE
     Indication: Insomnia
  7. METOPROLOL SUCCINATE [Concomitant]
     Active Substance: METOPROLOL SUCCINATE
     Dosage: UNK
     Route: 065
  8. VITAMINS [Concomitant]
     Active Substance: VITAMINS
     Dosage: UNK
     Route: 065
  9. OMEPRAZOLE [Concomitant]
     Active Substance: OMEPRAZOLE
     Dosage: UNK
     Route: 065
  10. ASPIRIN [Concomitant]
     Active Substance: ASPIRIN
     Dosage: UNK
     Route: 065

REACTIONS (4)
  - Knee operation [Unknown]
  - Urticaria [Unknown]
  - Pruritus [Unknown]
  - Inappropriate schedule of product administration [Unknown]

NARRATIVE: CASE EVENT DATE: 20220309
